FAERS Safety Report 7346022-2 (Version None)
Quarter: 2011Q1

REPORT INFORMATION
  Report Type: 
  Country: None (occurrence: None)
  Receive Date: 20110301
  Receipt Date: 20110224
  Transmission Date: 20110831
  Serious: Yes (Life-Threatening, Hospitalization)
  Sender: FDA-Public Use
  Company Number: 2011SP008741

PATIENT
  Age: 76 Year
  Sex: Male

DRUGS (12)
  1. BISOPROLOL FUMARATE [Concomitant]
  2. GLICAZIDE [Concomitant]
  3. IRBESARTAN [Concomitant]
  4. DEXAMETHASONE [Suspect]
     Indication: PROPHYLAXIS OF NAUSEA AND VOMITING
     Dosage: 8 MG; PO
     Route: 048
     Dates: start: 20110111, end: 20110113
  5. IRINOTECAN HYDROCHLORIDE [Suspect]
     Indication: COLON CANCER STAGE IV
     Dosage: 620 MG; IV
     Route: 042
     Dates: start: 20110111, end: 20110111
  6. ONDANSETRON HYDROCHLORIDE [Suspect]
     Indication: PROPHYLAXIS OF NAUSEA AND VOMITING
     Dosage: 8 MG; IV
     Route: 042
     Dates: start: 20110111, end: 20110111
  7. AMLODIPINE [Concomitant]
  8. PRAVASTATIN SODIUM [Concomitant]
  9. ASPIRIN [Concomitant]
  10. FERROUS SULFATE TAB [Concomitant]
  11. ISOSORBIDE MONONITRATE [Concomitant]
  12. METFORMIN [Concomitant]

REACTIONS (2)
  - DIARRHOEA [None]
  - ACUTE MYOCARDIAL INFARCTION [None]
